FAERS Safety Report 6035218-8 (Version None)
Quarter: 2009Q1

REPORT INFORMATION
  Report Type: 
  Country: None (occurrence: None)
  Receive Date: 20090109
  Receipt Date: 20090105
  Transmission Date: 20090719
  Serious: Yes (Other)
  Sender: FDA-Public Use
  Company Number: LTI2008A00289

PATIENT
  Age: 51 Year
  Sex: Female

DRUGS (4)
  1. ACTOS [Suspect]
     Indication: TYPE 2 DIABETES MELLITUS
     Dosage: 30 MG (30MG,1 - 2) ORAL
     Route: 048
     Dates: start: 20060710
  2. METFORMIN HCL [Suspect]
     Indication: TYPE 2 DIABETES MELLITUS
     Dosage: ORAL
     Route: 048
     Dates: start: 20060101
  3. DIAMICRON (GLICLAZIDE) [Concomitant]
  4. SEREVENT [Concomitant]

REACTIONS (3)
  - ANAEMIA MACROCYTIC [None]
  - BLOOD IRON INCREASED [None]
  - VITAMIN B12 DEFICIENCY [None]
